FAERS Safety Report 12484970 (Version 1)
Quarter: 2016Q2

REPORT INFORMATION
  Report Type: Spontaneous
  Country: US (occurrence: None)
  Receive Date: 20160620
  Receipt Date: 20160620
  Transmission Date: 20160815
  Serious: Yes (Disabling)
  Sender: FDA-Public Use
  Company Number: None

PATIENT
  Age: 65 Year
  Sex: Male
  Weight: 71.22 kg

DRUGS (13)
  1. VITAMIN D3 [Concomitant]
     Active Substance: CHOLECALCIFEROL
  2. GLUCOSAMINE SULFATE [Concomitant]
     Active Substance: GLUCOSAMINE SULFATE
  3. POTASSIUM CITRATE. [Concomitant]
     Active Substance: POTASSIUM CITRATE
  4. L-ARGININE [Concomitant]
     Active Substance: ARGININE
  5. L-CITRULINE [Concomitant]
  6. MONOLAURIN [Concomitant]
  7. ACETYL L-CARNITINE HCL [Concomitant]
  8. ATORVASTATIN [Suspect]
     Active Substance: ATORVASTATIN
     Indication: BLOOD CHOLESTEROL INCREASED
     Dosage: 30 TABLETS ONCE A DAY
     Dates: start: 20160605, end: 20160612
  9. L-LYSINE [Concomitant]
     Active Substance: LYSINE
  10. TURMERIC [Concomitant]
     Active Substance: TURMERIC
  11. CIALIS [Concomitant]
     Active Substance: TADALAFIL
  12. COQ10 [Concomitant]
     Active Substance: UBIDECARENONE
  13. ALPHA LIPOIC ACID [Concomitant]
     Active Substance: .ALPHA.-LIPOIC ACID

REACTIONS (2)
  - Paraesthesia [None]
  - Neuropathy peripheral [None]

NARRATIVE: CASE EVENT DATE: 20160605
